FAERS Safety Report 21549322 (Version 1)
Quarter: 2022Q4

REPORT INFORMATION
  Report Type: Spontaneous
  Country: CN (occurrence: CN)
  Receive Date: 20221103
  Receipt Date: 20221103
  Transmission Date: 20230113
  Serious: Yes (Other)
  Sender: FDA-Public Use
  Company Number: CN-ABBVIE-4139116

PATIENT
  Age: 81 Year
  Sex: Female

DRUGS (5)
  1. VENETOCLAX [Suspect]
     Active Substance: VENETOCLAX
     Indication: Acute myeloid leukaemia
     Dosage: DAYS 1-21
     Route: 048
  2. VENETOCLAX [Suspect]
     Active Substance: VENETOCLAX
     Indication: Acute myeloid leukaemia
     Dosage: DAY 1-7
     Route: 050
     Dates: start: 20210301, end: 20210307
  3. VENETOCLAX [Suspect]
     Active Substance: VENETOCLAX
     Indication: Acute myeloid leukaemia
     Dosage: 3 CYCLES OF 21 DAYS
     Route: 048
     Dates: start: 20210410
  4. AZACITIDINE [Suspect]
     Active Substance: AZACITIDINE
     Indication: Acute myeloid leukaemia
     Dosage: DAYS 1-7
     Route: 042
  5. CYTARABINE [Suspect]
     Active Substance: CYTARABINE
     Indication: Acute myeloid leukaemia
     Dosage: DAYS 2-8
     Route: 042
     Dates: start: 20210301

REACTIONS (7)
  - Pancytopenia [Unknown]
  - Febrile neutropenia [Unknown]
  - Agranulocytosis [Recovering/Resolving]
  - Upper respiratory tract infection [Unknown]
  - Abdominal infection [Unknown]
  - Pneumonia fungal [Recovering/Resolving]
  - Pneumonia [Recovering/Resolving]
